FAERS Safety Report 14629471 (Version 1)
Quarter: 2018Q1

REPORT INFORMATION
  Report Type: Spontaneous
  Country: US (occurrence: US)
  Receive Date: 20180312
  Receipt Date: 20180312
  Transmission Date: 20180509
  Serious: Yes (Life-Threatening, Hospitalization, Disabling)
  Sender: FDA-Public Use
  Company Number: None

PATIENT
  Age: 27 Year
  Sex: Female
  Weight: 105.75 kg

DRUGS (3)
  1. SEASONIQUE [Suspect]
     Active Substance: ETHINYL ESTRADIOL\LEVONORGESTREL
     Indication: ACNE
     Route: 048
  2. SEASONIQUE [Suspect]
     Active Substance: ETHINYL ESTRADIOL\LEVONORGESTREL
     Indication: PROPHYLAXIS
     Route: 048
  3. SEASONIQUE [Suspect]
     Active Substance: ETHINYL ESTRADIOL\LEVONORGESTREL
     Indication: CONTRACEPTION
     Route: 048

REACTIONS (5)
  - Scar [None]
  - Procedural pain [None]
  - Gallbladder injury [None]
  - Internal haemorrhage [None]
  - Hepatic adenoma [None]

NARRATIVE: CASE EVENT DATE: 20170502
